FAERS Safety Report 4521796-4 (Version None)
Quarter: 2004Q4

REPORT INFORMATION
  Report Type: 
  Country: None (occurrence: None)
  Receive Date: 20041207
  Receipt Date: 20041108
  Transmission Date: 20050328
  Serious: Yes (Other)
  Sender: FDA-Public Use
  Company Number: 2004091375

PATIENT
  Age: 64 Year
  Sex: Male
  Weight: 81.6475 kg

DRUGS (4)
  1. BEXTRA [Suspect]
     Indication: MYALGIA
     Dosage: ONE HALF AS NEEDED, ORAL
     Route: 048
  2. TIKOSYN [Suspect]
     Indication: ATRIAL FIBRILLATION
     Dosage: 1000 MCG (500 MCG, 2 IN 1
     Dates: start: 20041014
  3. SIMVASTATIN [Concomitant]
  4. WARFARIN SODIUM [Concomitant]

REACTIONS (3)
  - MYALGIA [None]
  - NAUSEA [None]
  - NECK PAIN [None]
